FAERS Safety Report 13845022 (Version 2)
Quarter: 2017Q4

REPORT INFORMATION
  Report Type: Spontaneous
  Country: US (occurrence: US)
  Receive Date: 20170808
  Receipt Date: 20171017
  Transmission Date: 20180320
  Serious: No
  Sender: FDA-Public Use
  Company Number: US-ASTRAZENECA-2011BM02558

PATIENT
  Age: 25640 Day
  Sex: Male
  Weight: 73.9 kg

DRUGS (8)
  1. METFORMIN [Concomitant]
     Active Substance: METFORMIN HYDROCHLORIDE
     Dosage: 1000 MG, BID
  2. BYETTA [Suspect]
     Active Substance: EXENATIDE
     Indication: TYPE 2 DIABETES MELLITUS
     Dosage: DAILY
     Route: 065
     Dates: start: 2012, end: 2012
  3. QUINAPRIL. [Concomitant]
     Active Substance: QUINAPRIL
     Indication: BLOOD PRESSURE ABNORMAL
  4. SIMVASTATIN. [Concomitant]
     Active Substance: SIMVASTATIN
  5. BYDUREON [Suspect]
     Active Substance: EXENATIDE
     Indication: TYPE 2 DIABETES MELLITUS
     Route: 058
     Dates: start: 20170802
  6. ONGLYZA [Suspect]
     Active Substance: SAXAGLIPTIN HYDROCHLORIDE
     Dosage: 1.0DF UNKNOWN
     Route: 048
  7. GLIPIZIDE. [Concomitant]
     Active Substance: GLIPIZIDE
     Indication: TYPE 2 DIABETES MELLITUS
     Dates: start: 1977
  8. ACTOS [Concomitant]
     Active Substance: PIOGLITAZONE HYDROCHLORIDE
     Dosage: ACTOS 45MG ??? TAB A DAY

REACTIONS (19)
  - Early satiety [Unknown]
  - Nausea [Unknown]
  - Injection site haemorrhage [Unknown]
  - Fatigue [Unknown]
  - Feeling abnormal [Unknown]
  - Drug ineffective [Unknown]
  - Abdominal discomfort [Unknown]
  - Injection site mass [Unknown]
  - Blood glucose decreased [Unknown]
  - Oesophagitis [Unknown]
  - Blood glucose increased [Unknown]
  - Retching [Unknown]
  - Dizziness [Unknown]
  - Confusional state [Unknown]
  - Limb mass [Unknown]
  - Gastric disorder [Unknown]
  - Product use issue [Unknown]
  - Hyperhidrosis [Unknown]
  - Off label use [Unknown]

NARRATIVE: CASE EVENT DATE: 20110819
